FAERS Safety Report 9733981 (Version 2)
Quarter: 2013Q4

REPORT INFORMATION
  Report Type: Spontaneous
  Country: GB (occurrence: GB)
  Receive Date: 20131205
  Receipt Date: 20131205
  Transmission Date: 20140711
  Serious: Yes (Death, Other)
  Sender: FDA-Public Use
  Company Number: GB-WATSON-2013-11996

PATIENT
  Age: 37 Year
  Sex: Male

DRUGS (16)
  1. BUPRENORPHINE [Suspect]
     Indication: DRUG DEPENDENCE
     Dosage: UNK
     Route: 065
     Dates: start: 201106, end: 2012
  2. BUPRENORPHINE (UNKNOWN) [Suspect]
     Dosage: UNK
     Route: 065
     Dates: start: 201102, end: 201106
  3. MIRTAZAPINE (UNKNOWN) [Suspect]
     Indication: ANXIETY
     Dosage: UNK
     Route: 065
     Dates: end: 201208
  4. CODEINE (UNKNOWN) [Suspect]
     Indication: BACK PAIN
     Dosage: UNK
     Route: 065
     Dates: end: 201208
  5. DIAZEPAM (UNKNOWN) [Suspect]
     Indication: PRODUCT USED FOR UNKNOWN INDICATION
     Dosage: UNK
     Route: 065
     Dates: end: 201208
  6. NITRAZEPAM (UNKNOWN) [Suspect]
     Indication: PRODUCT USED FOR UNKNOWN INDICATION
     Dosage: UNK
     Route: 065
     Dates: end: 201208
  7. OMEPRAZOLE (UNKNOWN) [Suspect]
     Indication: PRODUCT USED FOR UNKNOWN INDICATION
     Dosage: UNK
     Route: 065
     Dates: end: 201208
  8. PAPAVERINE (UNKNOWN) [Suspect]
     Indication: PRODUCT USED FOR UNKNOWN INDICATION
     Dosage: UNK
     Route: 065
     Dates: end: 201208
  9. HEROIN [Suspect]
     Indication: PRODUCT USED FOR UNKNOWN INDICATION
     Dosage: UNK
     Route: 065
     Dates: end: 201208
  10. SUBUTEX [Suspect]
     Indication: DRUG DEPENDENCE
     Dosage: STARTED WITH TITRATION OF SUBUTEX TO 16 MG, SUPERVISED CONSUMPTION
     Route: 065
     Dates: start: 20120830, end: 20120830
  11. SUBUTEX [Suspect]
     Dosage: UNK
     Route: 065
     Dates: start: 2012, end: 20120825
  12. ETHANOL [Suspect]
     Indication: PRODUCT USED FOR UNKNOWN INDICATION
     Dosage: UNK
     Route: 065
     Dates: end: 201208
  13. METHADONE [Suspect]
     Indication: PRODUCT USED FOR UNKNOWN INDICATION
     Dosage: UNK
     Route: 065
     Dates: end: 201208
  14. IRON [Suspect]
     Indication: PRODUCT USED FOR UNKNOWN INDICATION
     Dosage: UNK
     Route: 065
     Dates: end: 2012
  15. NOSCAPINE [Suspect]
     Indication: PRODUCT USED FOR UNKNOWN INDICATION
     Dosage: UNK
     Route: 065
     Dates: end: 201208
  16. WARFARIN [Concomitant]
     Indication: DEEP VEIN THROMBOSIS
     Dosage: UNK
     Route: 065
     Dates: end: 201208

REACTIONS (5)
  - Overdose [Fatal]
  - Drug abuse [Fatal]
  - Swelling face [Recovered/Resolved]
  - Feeling abnormal [Recovered/Resolved]
  - Drug ineffective [Recovered/Resolved]
